FAERS Safety Report 22294433 (Version 2)
Quarter: 2024Q2

REPORT INFORMATION
  Report Type: Spontaneous
  Country: US (occurrence: US)
  Receive Date: 20230508
  Receipt Date: 20240415
  Transmission Date: 20240716
  Serious: Yes (Other)
  Sender: FDA-Public Use
  Company Number: US-ASTELLAS-2022US023942

PATIENT
  Sex: Male

DRUGS (5)
  1. LEXISCAN [Suspect]
     Active Substance: REGADENOSON
     Indication: Product used for unknown indication
     Dosage: 0.4 MG, OTHER (ADMIN IV PUSH OVER 10-15 SEC)
     Route: 065
     Dates: start: 20220623, end: 20220623
  2. LEXISCAN [Suspect]
     Active Substance: REGADENOSON
     Indication: Product used for unknown indication
     Dosage: 0.4 MG, OTHER (ADMIN IV PUSH OVER 10-15 SEC)
     Route: 065
     Dates: start: 20220623, end: 20220623
  3. LEXISCAN [Suspect]
     Active Substance: REGADENOSON
     Indication: Product used for unknown indication
     Dosage: 0.4 MG, OTHER (ADMIN IV PUSH OVER 10-15 SEC)
     Route: 065
     Dates: start: 20220623, end: 20220623
  4. LEXISCAN [Suspect]
     Active Substance: REGADENOSON
     Indication: Product used for unknown indication
     Dosage: 0.4 MG, OTHER (ADMIN IV PUSH OVER 10-15 SEC)
     Route: 065
     Dates: start: 20220623, end: 20220623
  5. TRELEGY ELLIPTA [Concomitant]
     Active Substance: FLUTICASONE FUROATE\UMECLIDINIUM BROMIDE\VILANTEROL TRIFENATATE
     Indication: Product used for unknown indication
     Dosage: UNK UNK, UNKNOWN FREQ.
     Route: 065

REACTIONS (1)
  - Atrioventricular block [Recovered/Resolved]
